FAERS Safety Report 9413878 (Version 1)
Quarter: 2013Q3

REPORT INFORMATION
  Report Type: Spontaneous
  Country: DE (occurrence: None)
  Receive Date: 20130718
  Receipt Date: 20130718
  Transmission Date: 20140515
  Serious: Yes (Other)
  Sender: FDA-Public Use
  Company Number: DE-20130125

PATIENT
  Age: 62 Year
  Sex: Male

DRUGS (1)
  1. DOTAREM [Suspect]
     Indication: NUCLEAR MAGNETIC RESONANCE IMAGING
     Dosage: 19 ML, 1 IN 1 D
     Route: 042
     Dates: start: 20130703, end: 20130703

REACTIONS (3)
  - Eyelid oedema [None]
  - Oral discomfort [None]
  - Oral pruritus [None]
